FAERS Safety Report 9159607 (Version 2)
Quarter: 2013Q2

REPORT INFORMATION
  Report Type: Report from Study
  Country: US (occurrence: US)
  Receive Date: 20130313
  Receipt Date: 20130405
  Transmission Date: 20140414
  Serious: No
  Sender: FDA-Public Use
  Company Number: US-VERTEX PHARMACEUTICALS INC.-2013-003360

PATIENT
  Sex: Male
  Weight: 98 kg

DRUGS (7)
  1. VX-950 (TELAPREVIR) [Suspect]
     Indication: HEPATITIS C
     Dosage: 750 MG, TID
     Route: 048
  2. PEGASYS [Suspect]
     Indication: HEPATITIS C
     Dosage: 180 ?G, UNK
  3. RIBAPAK [Suspect]
     Indication: HEPATITIS C
     Dosage: 1000/DAY
  4. MOTRIN [Concomitant]
     Dosage: 400 MG, UNK
  5. MULTIVITAMIN [Concomitant]
  6. VITAMIN C [Concomitant]
     Dosage: 500 MG, UNK
  7. DIPHEN-EX [Concomitant]

REACTIONS (4)
  - White blood cell count decreased [Unknown]
  - Malaise [Unknown]
  - Fatigue [Unknown]
  - Pruritus [Unknown]
